FAERS Safety Report 5632309-8 (Version None)
Quarter: 2008Q1

REPORT INFORMATION
  Report Type: 
  Country: None (occurrence: None)
  Receive Date: 20080212
  Receipt Date: 20080205
  Transmission Date: 20080703
  Serious: Yes (Death)
  Sender: FDA-Public Use
  Company Number: 066-C5013-08020285

PATIENT
  Age: 82 Year
  Sex: Male
  Weight: 75 kg

DRUGS (3)
  1. CC-5013/PLACEBO (LENALIDOMIDE) (CAPSULES) [Suspect]
     Indication: MULTIPLE MYELOMA
     Dosage: 10 MG, DAILY, ORAL
     Route: 048
     Dates: start: 20071221, end: 20080203
  2. MELPHALAN (MELPHALAN) (0.18 MILLIGRAM(S)/KILOGRAM) [Suspect]
     Indication: MULTIPLE MYELOMA
     Dosage: 14 MG, DAILY; ORAL
     Route: 048
     Dates: start: 20071221, end: 20080125
  3. PREDNISONE [Suspect]
     Indication: MULTIPLE MYELOMA
     Dosage: 150 MG, DAILY; ORAL
     Route: 048
     Dates: start: 20071221, end: 20080125

REACTIONS (6)
  - ANURIA [None]
  - BLOOD CREATININE INCREASED [None]
  - DYSPNOEA [None]
  - FATIGUE [None]
  - HYPOTENSION [None]
  - SEPTIC SHOCK [None]
